FAERS Safety Report 17248735 (Version 2)
Quarter: 2020Q1

REPORT INFORMATION
  Report Type: Spontaneous
  Country: US (occurrence: US)
  Receive Date: 20200108
  Receipt Date: 20200213
  Transmission Date: 20200409
  Serious: No
  Sender: FDA-Public Use
  Company Number: US-PFIZER INC-2017104301

PATIENT
  Age: 78 Year
  Sex: Female

DRUGS (16)
  1. ASPIRIN 81 [Concomitant]
     Active Substance: ASPIRIN
     Dosage: 81 MG, 1X/DAY
  2. CYANOCOBALAMIN. [Concomitant]
     Active Substance: CYANOCOBALAMIN
     Dosage: UNK (INJECT 1 ML DAILY FOR 3 DAYS; THEN INJECT 1 1 ML WEEKLY FOR THREE WEEKS; THEN INJECT 1 ML MONTH
     Dates: start: 20160720
  3. LISINOPRIL. [Concomitant]
     Active Substance: LISINOPRIL
     Dosage: 20 MG, DAILY
     Route: 048
  4. THEOPHYLLINE [THEOPHYLLINE SODIUM AMINOACETATE] [Concomitant]
     Dosage: 200 MG, DAILY
     Route: 048
     Dates: start: 20151214
  5. LYRICA [Suspect]
     Active Substance: PREGABALIN
     Dosage: 200 MG, 2X/DAY
     Route: 048
  6. CYANOCOBALAMIN. [Concomitant]
     Active Substance: CYANOCOBALAMIN
     Dosage: 1 ML, UNK(1 WEEKLY FOR THREE WEEKS)
     Dates: start: 20160720
  7. LYRICA [Suspect]
     Active Substance: PREGABALIN
     Indication: NEUROPATHY PERIPHERAL
     Dosage: 50 MG, 2X/DAY
     Route: 048
     Dates: start: 20170124
  8. FLUOXETINE HCL [Concomitant]
     Active Substance: FLUOXETINE HYDROCHLORIDE
     Dosage: 20 MG, DAILY
     Route: 048
  9. OMEPRAZOLE. [Concomitant]
     Active Substance: OMEPRAZOLE
     Dosage: 20 MG, 2X/DAY
     Route: 048
     Dates: start: 19000101
  10. BIOTIN [Concomitant]
     Active Substance: BIOTIN
     Dosage: 1 MG, DAILY
     Route: 048
     Dates: start: 20151214
  11. CALCIUM [Concomitant]
     Active Substance: CALCIUM
     Dosage: 1800 MG, DAILY
     Route: 048
  12. CYANOCOBALAMIN. [Concomitant]
     Active Substance: CYANOCOBALAMIN
     Dosage: 1 ML, MONTHLY(INJECT 1 ML ONTHLY THER AFTER)
     Dates: start: 20160720
  13. VITAMIN D3 [Concomitant]
     Active Substance: CHOLECALCIFEROL
     Dosage: UNK
     Route: 048
  14. CLONAZEPAM. [Concomitant]
     Active Substance: CLONAZEPAM
     Dosage: UNK UNK, 1X/DAY (TAKE 1/2 TO 2 TABLETS AT BEDTIME)
     Route: 048
     Dates: start: 20160720
  15. FUROSEMIDE [FUROSEMIDE SODIUM] [Concomitant]
     Dosage: 20 MG, DAILY
     Route: 048
  16. PRAVASTATIN. [Concomitant]
     Active Substance: PRAVASTATIN
     Dosage: UNK

REACTIONS (2)
  - Gait disturbance [Unknown]
  - Pain in extremity [Unknown]
